FAERS Safety Report 25976311 (Version 1)
Quarter: 2025Q4

REPORT INFORMATION
  Report Type: Report from Study
  Country: US (occurrence: US)
  Receive Date: 20251029
  Receipt Date: 20251029
  Transmission Date: 20260119
  Serious: Yes (Other)
  Sender: ABBVIE
  Company Number: US-ABBVIE-6515999

PATIENT
  Age: 62 Year
  Sex: Male

DRUGS (1)
  1. RINVOQ [Suspect]
     Active Substance: UPADACITINIB
     Indication: Rheumatoid arthritis
     Route: 048
     Dates: start: 20231003

REACTIONS (4)
  - Sciatica [Unknown]
  - Intervertebral disc protrusion [Unknown]
  - Electric shock sensation [Not Recovered/Not Resolved]
  - Neck surgery [Unknown]

NARRATIVE: CASE EVENT DATE: 20240401
